FAERS Safety Report 25574482 (Version 1)
Quarter: 2025Q3

REPORT INFORMATION
  Report Type: Spontaneous
  Country: GB (occurrence: GB)
  Receive Date: 20250717
  Receipt Date: 20250717
  Transmission Date: 20251020
  Serious: Yes (Other)
  Sender: AVERITAS
  Company Number: GB-GRUNENTHAL-2025-110746

PATIENT
  Age: 66 Year
  Sex: Female

DRUGS (1)
  1. QUTENZA [Suspect]
     Active Substance: CAPSAICIN
     Indication: Product used for unknown indication
     Route: 003

REACTIONS (1)
  - Deep vein thrombosis [Unknown]
